FAERS Safety Report 24606552 (Version 1)
Quarter: 2024Q4

REPORT INFORMATION
  Report Type: Spontaneous
  Country: US (occurrence: US)
  Receive Date: 20241112
  Receipt Date: 20241112
  Transmission Date: 20250115
  Serious: No
  Sender: Kanchan Healthcare
  Company Number: US-Kanchan Healthcare INC-2164822

PATIENT
  Age: 70 Year
  Sex: Female

DRUGS (4)
  1. ETHAMBUTOL HYDROCHLORIDE [Suspect]
     Active Substance: ETHAMBUTOL HYDROCHLORIDE
     Indication: Mycobacterial infection
  2. ALBUTEROL SULFATE [Concomitant]
     Active Substance: ALBUTEROL SULFATE
  3. CALCIUM CARBONATE WITH VITAMIN D (CHOLECALCIFEROL) [Concomitant]
     Active Substance: CALCIUM CARBONATE\CHOLECALCIFEROL
  4. AMIKACIN SULFATE [Concomitant]
     Active Substance: AMIKACIN SULFATE

REACTIONS (5)
  - Visual acuity reduced [Recovered/Resolved]
  - Toxicity to various agents [Recovered/Resolved]
  - Drug intolerance [Unknown]
  - Visual field defect [Recovered/Resolved]
  - Dyschromatopsia [Recovered/Resolved]
